FAERS Safety Report 5590662-8 (Version None)
Quarter: 2008Q1

REPORT INFORMATION
  Report Type: 
  Country: None (occurrence: None)
  Receive Date: 20080114
  Receipt Date: 20080108
  Transmission Date: 20080703
  Serious: Yes (Disabling)
  Sender: FDA-Public Use
  Company Number: US-MERCK-0801USA01370

PATIENT
  Age: 55 Year
  Sex: Female

DRUGS (9)
  1. VYTORIN [Suspect]
     Indication: BLOOD CHOLESTEROL
     Route: 048
     Dates: start: 20070101, end: 20071201
  2. VERAPAMIL [Concomitant]
     Route: 065
  3. LYRICA [Concomitant]
     Route: 065
  4. VASOTEC [Concomitant]
     Route: 065
  5. DIURIL [Concomitant]
     Route: 065
  6. CYMBALTA [Concomitant]
     Route: 065
  7. PROTONIX [Concomitant]
     Route: 065
  8. ZYPREXA [Concomitant]
     Route: 065
  9. [THERAPY UNSPECIFIED] [Concomitant]
     Route: 065

REACTIONS (1)
  - AMYOTROPHIC LATERAL SCLEROSIS [None]
